FAERS Safety Report 7744797-1 (Version None)
Quarter: 2011Q3

REPORT INFORMATION
  Report Type: 
  Country: None (occurrence: None)
  Receive Date: 20110912
  Receipt Date: 20110912
  Transmission Date: 20111222
  Serious: Yes (Other)
  Sender: FDA-Public Use
  Company Number: None

PATIENT
  Age: 55 Year
  Sex: Female
  Weight: 70.306 kg

DRUGS (1)
  1. BONIVA [Suspect]
     Indication: OSTEOPENIA
     Dosage: 150 MG
     Route: 048
     Dates: start: 20110905, end: 20110905

REACTIONS (9)
  - DIARRHOEA [None]
  - NAUSEA [None]
  - BURNING SENSATION [None]
  - TOOTHACHE [None]
  - ABDOMINAL PAIN UPPER [None]
  - HEADACHE [None]
  - BONE PAIN [None]
  - DYSPEPSIA [None]
  - IMPAIRED WORK ABILITY [None]
